FAERS Safety Report 5204781-9 (Version None)
Quarter: 2007Q1

REPORT INFORMATION
  Report Type: 
  Country: None (occurrence: None)
  Receive Date: 20070110
  Receipt Date: 20060717
  Transmission Date: 20070707
  Serious: No
  Sender: FDA-Public Use
  Company Number: US-BRISTOL-MYERS SQUIBB COMPANY-13444294

PATIENT
  Sex: Female
  Weight: 100 kg

DRUGS (9)
  1. ABILIFY [Suspect]
     Indication: BIPOLAR DISORDER
     Route: 048
  2. NEFAZODONE HCL [Concomitant]
  3. ADDERALL 10 [Concomitant]
  4. LAMICTAL [Concomitant]
  5. KLONOPIN [Concomitant]
  6. LEVOXYL [Concomitant]
  7. FOCALIN [Concomitant]
  8. MICROGESTIN FE [Concomitant]
  9. ZANTAC [Concomitant]

REACTIONS (10)
  - ABDOMINAL PAIN UPPER [None]
  - BLOOD GLUCOSE INCREASED [None]
  - DIPLOPIA [None]
  - DIZZINESS [None]
  - NAUSEA [None]
  - RASH MACULAR [None]
  - SALIVARY HYPERSECRETION [None]
  - SOMNOLENCE [None]
  - VISION BLURRED [None]
  - WEIGHT INCREASED [None]
